FAERS Safety Report 8868802 (Version 1)
Quarter: 2012Q4

REPORT INFORMATION
  Report Type: 
  Country: US (occurrence: US)
  Receive Date: 20121026
  Receipt Date: 20121026
  Transmission Date: 20130627
  Serious: No
  Sender: FDA-Public Use
  Company Number: US-AMGEN-USASP2012047464

PATIENT
  Age: 68 Year
  Sex: Male
  Weight: 126.98 kg

DRUGS (6)
  1. ENBREL [Suspect]
     Indication: PRODUCT USED FOR UNKNOWN INDICATION
     Dosage: 50 mg/ml, qwk
  2. ZOCOR [Concomitant]
     Dosage: 40 mg, UNK
  3. PRILOSEC                           /00661201/ [Concomitant]
     Dosage: 20 mg, UNK
  4. TOPROL [Concomitant]
     Dosage: 100 mg, UNK
  5. ASPIRIN LOW [Concomitant]
     Dosage: 81 mg, UNK
  6. TYLENOL /00020001/ [Concomitant]
     Dosage: 325 mg, UNK

REACTIONS (2)
  - Pain [Recovered/Resolved]
  - Malaise [Recovered/Resolved]
